FAERS Safety Report 25715974 (Version 1)
Quarter: 2025Q3

REPORT INFORMATION
  Report Type: Report from Study
  Country: US (occurrence: US)
  Receive Date: 20250822
  Receipt Date: 20250822
  Transmission Date: 20251020
  Serious: Yes (Other)
  Sender: ABBVIE
  Company Number: US-ABBVIE-6426787

PATIENT
  Sex: Female

DRUGS (1)
  1. IMBRUVICA [Suspect]
     Active Substance: IBRUTINIB
     Indication: Chronic lymphocytic leukaemia
     Dosage: 140 MILLIGRAM TWICE A DAY.
     Route: 048
     Dates: start: 20240430

REACTIONS (3)
  - Knee arthroplasty [Unknown]
  - Dental implantation [Unknown]
  - Arthralgia [Unknown]
